FAERS Safety Report 5072345-6 (Version None)
Quarter: 2006Q3

REPORT INFORMATION
  Report Type: 
  Country: None (occurrence: None)
  Receive Date: 20060801
  Receipt Date: 20060719
  Transmission Date: 20061208
  Serious: Yes (Other)
  Sender: FDA-Public Use
  Company Number: 2005074293

PATIENT
  Age: 45 Year
  Sex: Female
  Weight: 70.3075 kg

DRUGS (7)
  1. NEURONTIN [Suspect]
     Indication: HEADACHE
     Dosage: 1800 MG (600 MG, 3 IN 1 D), ORAL
     Route: 048
  2. MOTRIN [Suspect]
     Indication: PAIN
     Dosage: 800 MG, ORAL
     Route: 048
  3. HYDROCODONE (HYDROCODONE) [Suspect]
     Indication: ILL-DEFINED DISORDER
  4. MOBIC [Suspect]
     Indication: PAIN
     Dosage: ORAL
     Route: 048
     Dates: start: 20050509
  5. OXYCODONE (OXYCODONE) [Suspect]
     Indication: DRUG USE FOR UNKNOWN INDICATION
  6. ULTRAM [Concomitant]
  7. ALL OTHER THERAPEUTIC PRODUCTS [Concomitant]

REACTIONS (12)
  - BACK DISORDER [None]
  - BRAIN DAMAGE [None]
  - CONDITION AGGRAVATED [None]
  - DRUG INEFFECTIVE [None]
  - DRUG INTERACTION [None]
  - HEADACHE [None]
  - INSOMNIA [None]
  - INTERVERTEBRAL DISC PROTRUSION [None]
  - MUSCULOSKELETAL PAIN [None]
  - NERVE COMPRESSION [None]
  - NEUROPATHY [None]
  - PAIN IN EXTREMITY [None]
